FAERS Safety Report 6265211-1 (Version None)
Quarter: 2009Q3

REPORT INFORMATION
  Report Type: 
  Country: None (occurrence: None)
  Receive Date: 20090713
  Receipt Date: 20090629
  Transmission Date: 20100115
  Serious: Yes (Other)
  Sender: FDA-Public Use
  Company Number: US-ROCHE-640951

PATIENT
  Age: 49 Year
  Sex: Female

DRUGS (3)
  1. RIBAVIRIN [Suspect]
     Route: 065
  2. RIBAVIRIN [Suspect]
     Dosage: DOSE REDUCED OVER TWO WEEKS
     Route: 065
  3. PEG-INTERFERON A-2A (RO 25-8310) [Suspect]
     Route: 065

REACTIONS (2)
  - ANAEMIA [None]
  - PORPHYRIA NON-ACUTE [None]
